FAERS Safety Report 20491220 (Version 1)
Quarter: 2022Q1

REPORT INFORMATION
  Report Type: Report from Study
  Country: US (occurrence: US)
  Receive Date: 20220218
  Receipt Date: 20220218
  Transmission Date: 20220423
  Serious: No
  Sender: FDA-Public Use
  Company Number: US-MIRM-000201

PATIENT
  Age: 6 Year
  Sex: Male

DRUGS (2)
  1. LIVMARLI [Suspect]
     Active Substance: MARALIXIBAT CHLORIDE
     Indication: Product used for unknown indication
     Dosage: MID-SEPTEMBER 2021?0.35 ML FOR THE FIRST WEEK
     Route: 048
     Dates: start: 202109, end: 202109
  2. LIVMARLI [Suspect]
     Active Substance: MARALIXIBAT CHLORIDE
     Indication: Product used for unknown indication
     Dosage: 0.7 FOR THE SECOND WEEK?ONCE AT 6 AM
     Route: 048
     Dates: start: 202109

REACTIONS (2)
  - Diarrhoea [Unknown]
  - Pruritus [Unknown]
